FAERS Safety Report 5224907-0 (Version None)
Quarter: 2007Q1

REPORT INFORMATION
  Report Type: 
  Country: None (occurrence: None)
  Receive Date: 20070126
  Receipt Date: 20070112
  Transmission Date: 20070707
  Serious: Yes (Hospitalization)
  Sender: FDA-Public Use
  Company Number: 2007RR-05337

PATIENT
  Age: 68 Year
  Sex: Male

DRUGS (2)
  1. METFORMINE RPG 850 MG COMPRIME PELLICULE (METFORMIN HYDROCHLORIDE) UNK [Suspect]
     Dosage: 1700 MD, QD, UNK
     Dates: end: 20030829
  2. TAHOR [Concomitant]

REACTIONS (2)
  - BLOOD CREATINE PHOSPHOKINASE INCREASED [None]
  - NECK PAIN [None]
